FAERS Safety Report 23312651 (Version 1)
Quarter: 2023Q4

REPORT INFORMATION
  Report Type: Other
  Country: CA (occurrence: None)
  Receive Date: 20231219
  Receipt Date: 20231219
  Transmission Date: 20240109
  Serious: No
  Sender: FDA-Public Use
  Company Number: CA-ROCHE-3411701

PATIENT
  Sex: Female

DRUGS (5)
  1. OCREVUS [Suspect]
     Active Substance: OCRELIZUMAB
     Indication: Primary progressive multiple sclerosis
     Dosage: THEN 600 MG EVERY 6 MONTHS
     Route: 042
     Dates: start: 20230817
  2. AURO-ESCITALOPRAM [Concomitant]
  3. METFORMIN HYDROCHLORIDE [Concomitant]
     Active Substance: METFORMIN HYDROCHLORIDE
  4. ATORVASTATIN [Concomitant]
     Active Substance: ATORVASTATIN
  5. DALFAMPRIDINE [Concomitant]
     Active Substance: DALFAMPRIDINE

REACTIONS (6)
  - Ulcer [Recovering/Resolving]
  - Uterine mass [Not Recovered/Not Resolved]
  - Pollakiuria [Not Recovered/Not Resolved]
  - Amnesia [Not Recovered/Not Resolved]
  - Uterine enlargement [Unknown]
  - Fungal infection [Not Recovered/Not Resolved]
